FAERS Safety Report 4917268-5 (Version None)
Quarter: 2006Q1

REPORT INFORMATION
  Report Type: 
  Country: None (occurrence: None)
  Receive Date: 20060221
  Receipt Date: 20050302
  Transmission Date: 20060701
  Serious: Yes (Hospitalization, Other)
  Sender: FDA-Public Use
  Company Number: US-MERCK-0503USA00569

PATIENT
  Age: 68 Year
  Sex: Female
  Weight: 77 kg

DRUGS (2)
  1. VIOXX [Suspect]
     Indication: ARTHRITIS
     Route: 048
     Dates: start: 20000601, end: 20040901
  2. IBUPROFEN [Concomitant]
     Route: 065

REACTIONS (4)
  - AORTIC ANEURYSM [None]
  - CEREBROVASCULAR ACCIDENT [None]
  - INJURY [None]
  - MYOCARDIAL INFARCTION [None]
